FAERS Safety Report 8518740-1 (Version None)
Quarter: 2012Q3

REPORT INFORMATION
  Report Type: 
  Country: None (occurrence: None)
  Receive Date: 20120718
  Receipt Date: 20120711
  Transmission Date: 20120928
  Serious: Yes (Hospitalization)
  Sender: FDA-Public Use
  Company Number: PHHY2010US47961

PATIENT
  Sex: Male

DRUGS (10)
  1. ASPIRIN [Concomitant]
  2. VITAMIN D [Concomitant]
  3. SIMVASTATIN [Concomitant]
  4. RECLAST [Suspect]
     Indication: OSTEOPOROSIS
     Dosage: 5 MG, UNK
     Route: 042
     Dates: start: 20090101
  5. CALCIUM [Concomitant]
  6. OMEPRAZOLE [Concomitant]
  7. RECLAST [Suspect]
     Dosage: 5 MG, UNK
     Route: 042
     Dates: start: 20100716
  8. TAMSULOSIN HCL [Concomitant]
  9. METOPROLOL SUCCINATE [Concomitant]
  10. VITAMIN B-12 [Concomitant]

REACTIONS (5)
  - MUSCULOSKELETAL STIFFNESS [None]
  - PARKINSON'S DISEASE [None]
  - ABASIA [None]
  - ASTHENIA [None]
  - TREMOR [None]
